FAERS Safety Report 18768594 (Version 1)
Quarter: 2021Q1

REPORT INFORMATION
  Report Type: Report from Study
  Country: US (occurrence: US)
  Receive Date: 20210121
  Receipt Date: 20210121
  Transmission Date: 20210419
  Serious: Yes (Other)
  Sender: FDA-Public Use
  Company Number: US-ASTRAZENECA-2021A008585

PATIENT
  Sex: Female

DRUGS (1)
  1. LYNPARZA [Suspect]
     Active Substance: OLAPARIB
     Indication: OVARIAN CANCER
     Route: 048

REACTIONS (5)
  - Glomerular filtration rate decreased [Unknown]
  - Carbohydrate antigen 125 increased [Unknown]
  - Blood pressure increased [Unknown]
  - Dyspnoea [Unknown]
  - Seasonal allergy [Unknown]
